FAERS Safety Report 10017872 (Version 1)
Quarter: 2014Q1

REPORT INFORMATION
  Report Type: Spontaneous
  Country: US (occurrence: US)
  Receive Date: 20140318
  Receipt Date: 20140318
  Transmission Date: 20141002
  Serious: No
  Sender: FDA-Public Use
  Company Number: US-BRISTOL-MYERS SQUIBB COMPANY-18856617

PATIENT
  Age: 66 Year
  Sex: Male
  Weight: 101.13 kg

DRUGS (4)
  1. ERBITUX [Suspect]
     Indication: THROAT CANCER
  2. DEPAKOTE [Concomitant]
  3. ATENOLOL [Concomitant]
  4. ASPIRIN [Concomitant]

REACTIONS (4)
  - Asthenia [Unknown]
  - Diarrhoea [Unknown]
  - Nail disorder [Unknown]
  - Rash [Unknown]
